FAERS Safety Report 8061093-6 (Version None)
Quarter: 2012Q1

REPORT INFORMATION
  Report Type: 
  Country: None (occurrence: None)
  Receive Date: 20120120
  Receipt Date: 20110407
  Transmission Date: 20120608
  Serious: No
  Sender: FDA-Public Use
  Company Number: US-ALLERGAN-1016774US

PATIENT
  Age: 88 Year
  Sex: Female

DRUGS (4)
  1. PROPYLENE GLYCOL [Suspect]
     Indication: DRY EYE
  2. RESTASIS [Suspect]
     Indication: DRY EYE
     Dosage: UNK
     Route: 047
  3. THERA TEARS [Suspect]
     Indication: DRY EYE
  4. TEARS NATURALE [Suspect]
     Indication: DRY EYE

REACTIONS (2)
  - INCREASED UPPER AIRWAY SECRETION [None]
  - ODYNOPHAGIA [None]
